FAERS Safety Report 15122456 (Version 2)
Quarter: 2018Q3

REPORT INFORMATION
  Report Type: Spontaneous
  Country: BE (occurrence: BE)
  Receive Date: 20180709
  Receipt Date: 20180806
  Transmission Date: 20181010
  Serious: Yes (Life-Threatening, Hospitalization, Other)
  Sender: FDA-Public Use
  Company Number: PHHY2018BE034957

PATIENT
  Age: 85 Year
  Sex: Female

DRUGS (2)
  1. DONEPEZIL SANDOZ [Suspect]
     Active Substance: DONEPEZIL HYDROCHLORIDE
     Indication: PRODUCT USED FOR UNKNOWN INDICATION
     Dosage: 5 MG, UNK
     Route: 065
  2. DONEPEZIL SANDOZ [Suspect]
     Active Substance: DONEPEZIL HYDROCHLORIDE
     Dosage: 10 MG, UNK
     Route: 065
     Dates: start: 200705

REACTIONS (12)
  - Weight decreased [Unknown]
  - Insomnia [Unknown]
  - Feeling abnormal [Unknown]
  - Infection [Unknown]
  - Neuroleptic malignant syndrome [Unknown]
  - Alopecia [Unknown]
  - Decreased appetite [Unknown]
  - General physical health deterioration [Unknown]
  - Paranoia [Unknown]
  - Incontinence [Unknown]
  - Dementia [Unknown]
  - Ill-defined disorder [Unknown]

NARRATIVE: CASE EVENT DATE: 201804
